FAERS Safety Report 9406220 (Version 2)
Quarter: 2013Q3

REPORT INFORMATION
  Report Type: Spontaneous
  Country: TR (occurrence: TR)
  Receive Date: 20130717
  Receipt Date: 20130729
  Transmission Date: 20140515
  Serious: Yes (Death, Other)
  Sender: FDA-Public Use
  Company Number: TR-GILEAD-2012-0064256

PATIENT
  Age: 49 Year
  Sex: Male

DRUGS (4)
  1. TRUVADA [Suspect]
     Indication: HIV INFECTION
     Dosage: 1 DF, QD
     Route: 048
     Dates: start: 20120913, end: 20121015
  2. LOPINAVIR W/RITONAVIR [Concomitant]
     Dosage: 2 DF, BID
     Route: 048
  3. BACTRIM [Concomitant]
     Dosage: UNK
     Route: 048
  4. CLEXAN [Concomitant]
     Route: 058

REACTIONS (2)
  - Lymphoma [Fatal]
  - Renal failure acute [Not Recovered/Not Resolved]
